FAERS Safety Report 25082066 (Version 1)
Quarter: 2025Q1

REPORT INFORMATION
  Report Type: Spontaneous
  Country: US (occurrence: US)
  Receive Date: 20250317
  Receipt Date: 20250317
  Transmission Date: 20250408
  Serious: No
  Sender: CIPLA
  Company Number: US-CIPLA LTD.-2024US05471

PATIENT

DRUGS (1)
  1. TAVABOROLE [Suspect]
     Active Substance: TAVABOROLE
     Indication: Onychomycosis
     Route: 061
     Dates: start: 202405

REACTIONS (5)
  - Incorrect dose administered [Unknown]
  - Product use complaint [Unknown]
  - Liquid product physical issue [Unknown]
  - Product delivery mechanism issue [Unknown]
  - Product quality issue [Unknown]

NARRATIVE: CASE EVENT DATE: 20240501
